FAERS Safety Report 5035456-7 (Version None)
Quarter: 2006Q2

REPORT INFORMATION
  Report Type: 
  Country: None (occurrence: None)
  Receive Date: 20060526
  Receipt Date: 20060309
  Transmission Date: 20061013
  Serious: No
  Sender: FDA-Public Use
  Company Number: FABR-11439

PATIENT
  Age: 50 Year
  Sex: Male

DRUGS (4)
  1. FABRAZYME [Suspect]
     Indication: FABRY'S DISEASE
     Dates: start: 20060210
  2. FABRAZYME [Suspect]
     Indication: FABRY'S DISEASE
     Dates: start: 20050101
  3. IBUPROFEN [Concomitant]
  4. TYLENOL (CAPLET) [Concomitant]

REACTIONS (2)
  - DIARRHOEA [None]
  - VOMITING [None]
